FAERS Safety Report 4678191-7 (Version None)
Quarter: 2005Q2

REPORT INFORMATION
  Report Type: 
  Country: None (occurrence: None)
  Receive Date: 20050527
  Receipt Date: 20050518
  Transmission Date: 20051028
  Serious: Yes (Hospitalization)
  Sender: FDA-Public Use
  Company Number: 213552

PATIENT
  Age: 49 Year
  Sex: Male

DRUGS (9)
  1. RITUXAN [Suspect]
     Indication: DIFFUSE LARGE B-CELL LYMPHOMA
     Dosage: 600 MG, INTRAVENOUS
     Route: 042
     Dates: start: 20020410, end: 20020501
  2. PIRARUBICIN (PIRARUBICIN) [Suspect]
     Indication: DIFFUSE LARGE B-CELL LYMPHOMA
     Dates: start: 20020306, end: 20020430
  3. CYCLOPHOSPHAMIDE [Suspect]
     Indication: DIFFUSE LARGE B-CELL LYMPHOMA
     Dates: start: 20020306, end: 20020430
  4. CYCLOPHOSPHAMIDE [Suspect]
     Indication: DIFFUSE LARGE B-CELL LYMPHOMA
     Dates: start: 20020804, end: 20020805
  5. VINCRISTINE [Suspect]
     Indication: DIFFUSE LARGE B-CELL LYMPHOMA
     Dates: start: 20020306, end: 20020430
  6. PREDNISONE [Suspect]
     Indication: DIFFUSE LARGE B-CELL LYMPHOMA
     Dates: start: 20020306, end: 20020504
  7. RANIMUSTINE (RANIMUSTINE) [Suspect]
     Indication: DIFFUSE LARGE B-CELL LYMPHOMA
     Dates: start: 20020730, end: 20020730
  8. RANIMUSTINE (RANIMUSTINE) [Suspect]
     Indication: DIFFUSE LARGE B-CELL LYMPHOMA
     Dates: start: 20020805, end: 20020805
  9. PERIPHERAL BLOOD STEM CELL (STEM CELLS) [Concomitant]

REACTIONS (5)
  - DYSPNOEA [None]
  - NASOPHARYNGITIS [None]
  - OEDEMA [None]
  - PLEURAL EFFUSION [None]
  - VIRAL PERICARDITIS [None]
